FAERS Safety Report 5419068-9 (Version None)
Quarter: 2007Q3

REPORT INFORMATION
  Report Type: 
  Country: None (occurrence: None)
  Receive Date: 20070820
  Receipt Date: 20070813
  Transmission Date: 20080115
  Serious: Yes (Hospitalization)
  Sender: FDA-Public Use
  Company Number: PHRM2007FR02020

PATIENT
  Age: 42 Year
  Sex: Male

DRUGS (7)
  1. LIORESAL [Suspect]
     Dosage: 3 DF, QD
     Route: 048
     Dates: end: 20041129
  2. LIORESAL [Suspect]
     Dosage: 1.5 DF, QD
     Route: 048
     Dates: start: 20041130
  3. LOVENOX [Concomitant]
     Indication: VENOUS THROMBOSIS
     Dosage: 1 DF, QD
     Route: 058
     Dates: start: 20041125, end: 20041205
  4. SERESTA [Concomitant]
     Route: 048
     Dates: start: 20041015
  5. PREVISCAN [Suspect]
     Indication: VENOUS THROMBOSIS
     Dosage: 20 MG, QD
     Route: 048
     Dates: start: 20041126
  6. NEURONTIN [Concomitant]
     Dosage: 600 MG, QD
     Route: 048
     Dates: start: 20041027
  7. TRAMADOL HCL [Concomitant]
     Route: 048
     Dates: start: 20041015

REACTIONS (4)
  - ALANINE AMINOTRANSFERASE INCREASED [None]
  - ASPARTATE AMINOTRANSFERASE INCREASED [None]
  - BLOOD ALKALINE PHOSPHATASE INCREASED [None]
  - GAMMA-GLUTAMYLTRANSFERASE INCREASED [None]
